FAERS Safety Report 7900998-0 (Version None)
Quarter: 2011Q4

REPORT INFORMATION
  Report Type: 
  Country: None (occurrence: None)
  Receive Date: 20111108
  Receipt Date: 20111102
  Transmission Date: 20120403
  Serious: Yes (Death)
  Sender: FDA-Public Use
  Company Number: US-PFIZER INC-2011269596

PATIENT
  Sex: Male

DRUGS (1)
  1. VFEND [Suspect]
     Indication: HODGKIN'S DISEASE
     Dosage: 100-200 MG, 2X/DAY
     Dates: start: 20110908

REACTIONS (1)
  - DEATH [None]
